FAERS Safety Report 6875013-0 (Version None)
Quarter: 2010Q3

REPORT INFORMATION
  Report Type: 
  Country: None (occurrence: None)
  Receive Date: 20100727
  Receipt Date: 20100719
  Transmission Date: 20110219
  Serious: Yes (Hospitalization, Other)
  Sender: FDA-Public Use
  Company Number: US-AMGEN-US357587

PATIENT
  Sex: Female
  Weight: 89.9 kg

DRUGS (1)
  1. NPLATE [Suspect]
     Indication: IDIOPATHIC THROMBOCYTOPENIC PURPURA
     Route: 058
     Dates: start: 20090717

REACTIONS (15)
  - BONE MARROW DISORDER [None]
  - BONE MARROW RETICULIN FIBROSIS [None]
  - CHOLELITHIASIS [None]
  - EPISTAXIS [None]
  - GASTRITIS EROSIVE [None]
  - HEPATIC CIRRHOSIS [None]
  - HYPOKALAEMIA [None]
  - HYPOXIA [None]
  - MALLORY-WEISS SYNDROME [None]
  - PLEURAL EFFUSION [None]
  - PNEUMONIA [None]
  - PYREXIA [None]
  - SEPSIS [None]
  - URINARY TRACT INFECTION [None]
  - WHITE BLOOD CELL COUNT INCREASED [None]
